FAERS Safety Report 10519346 (Version 1)
Quarter: 2014Q4

REPORT INFORMATION
  Report Type: Spontaneous
  Country: US (occurrence: None)
  Receive Date: 20141014
  Receipt Date: 20141014
  Transmission Date: 20150528
  Serious: Yes (Other)
  Sender: FDA-Public Use
  Company Number: None

PATIENT
  Age: 46 Year
  Sex: Male
  Weight: 113.2 kg

DRUGS (1)
  1. ALBENDAZOLE [Suspect]
     Active Substance: ALBENDAZOLE
     Dosage: 50
     Dates: start: 20140217, end: 20140502

REACTIONS (1)
  - Hepatitis [None]

NARRATIVE: CASE EVENT DATE: 20140501
